FAERS Safety Report 8074142-6 (Version None)
Quarter: 2012Q1

REPORT INFORMATION
  Report Type: 
  Country: None (occurrence: None)
  Receive Date: 20120119
  Receipt Date: 20120112
  Transmission Date: 20120608
  Serious: Yes (Death, Hospitalization)
  Sender: FDA-Public Use
  Company Number: DSA_48869_2012

PATIENT
  Sex: Male

DRUGS (9)
  1. METHIZOL (UNKNOWN) [Concomitant]
  2. BUPROPION HYDROCHLORIDE [Suspect]
     Indication: DEPRESSION
     Dosage: (150 MG, DAILY ORAL), (300 MG, DAILY ORAL)
     Route: 048
     Dates: start: 20110708, end: 20110714
  3. BUPROPION HYDROCHLORIDE [Suspect]
     Indication: DEPRESSION
     Dosage: (150 MG, DAILY ORAL), (300 MG, DAILY ORAL)
     Route: 048
     Dates: start: 20110715
  4. ZOPICLONE (ZOPICLONE) [Suspect]
     Indication: PRODUCT USED FOR UNKNOWN INDICATION
     Dosage: (7.5 MG, DAILY ORAL)
     Route: 048
     Dates: start: 20110705
  5. FURORESE /00032601/ (UNKNOWN) [Concomitant]
  6. MIRTAZAPINE [Suspect]
     Indication: PRODUCT USED FOR UNKNOWN INDICATION
     Dosage: (45 MG, DAILY ORAL)
     Route: 048
  7. FALITHROM (FALITHROM- PHENPROCOUMON) [Suspect]
     Indication: PRODUCT USED FOR UNKNOWN INDICATION
     Dosage: (DF ORAL)
     Route: 048
     Dates: start: 19950101
  8. PANTOZOL /01263204/ (UNKNOWN) [Concomitant]
  9. BISOPROLOL (UNKNOWN) [Concomitant]

REACTIONS (14)
  - HYPOTENSION [None]
  - CONVULSION [None]
  - INHIBITORY DRUG INTERACTION [None]
  - FALL [None]
  - RESPIRATORY FAILURE [None]
  - CHEYNE-STOKES RESPIRATION [None]
  - CONFUSIONAL STATE [None]
  - EXCORIATION [None]
  - LACERATION [None]
  - PUPILLARY REFLEX IMPAIRED [None]
  - OEDEMA PERIPHERAL [None]
  - BRAIN STEM HAEMORRHAGE [None]
  - DEPRESSED LEVEL OF CONSCIOUSNESS [None]
  - BRADYCARDIA [None]
